FAERS Safety Report 22330438 (Version 1)
Quarter: 2023Q2

REPORT INFORMATION
  Report Type: Spontaneous
  Country: US (occurrence: None)
  Receive Date: 20230517
  Receipt Date: 20230517
  Transmission Date: 20230721
  Serious: No
  Sender: FDA-Public Use
  Company Number: US-ROCHE-3097261

PATIENT
  Sex: Female
  Weight: 89.892 kg

DRUGS (1)
  1. ACTEMRA [Suspect]
     Active Substance: TOCILIZUMAB
     Indication: Rheumatoid arthritis
     Route: 058
     Dates: start: 20191202

REACTIONS (3)
  - Uterine leiomyoma [Unknown]
  - Uterine enlargement [Unknown]
  - Haemorrhage [Unknown]
